FAERS Safety Report 22054132 (Version 2)
Quarter: 2023Q1

REPORT INFORMATION
  Report Type: Spontaneous
  Country: US (occurrence: US)
  Receive Date: 20230302
  Receipt Date: 20230317
  Transmission Date: 20230418
  Serious: Yes (Hospitalization)
  Sender: FDA-Public Use
  Company Number: US-Calliditas-2023CAL00149

PATIENT
  Age: 48 Year
  Sex: Female

DRUGS (6)
  1. TARPEYO [Suspect]
     Active Substance: BUDESONIDE
     Indication: IgA nephropathy
     Dosage: 16 MG (4 MG CAPSULES) DAILY
     Route: 048
     Dates: start: 20221024, end: 20230215
  2. LOSARTAN [Concomitant]
     Active Substance: LOSARTAN
  3. SPIRONOLACTONE [Concomitant]
     Active Substance: SPIRONOLACTONE
  4. ROSUVASTATIN [Concomitant]
     Active Substance: ROSUVASTATIN
  5. CETIRIZINE [Concomitant]
     Active Substance: CETIRIZINE HYDROCHLORIDE
  6. VITAMINS [Concomitant]
     Active Substance: VITAMINS

REACTIONS (9)
  - Metabolic surgery [Recovered/Resolved]
  - Rectal haemorrhage [Recovered/Resolved]
  - Wrong technique in product usage process [Unknown]
  - Diarrhoea [Unknown]
  - Gingival bleeding [Recovered/Resolved]
  - Gingival discomfort [Unknown]
  - Tongue discomfort [Unknown]
  - Constipation [Recovered/Resolved]
  - Flatulence [Unknown]

NARRATIVE: CASE EVENT DATE: 20221101
